FAERS Safety Report 11133024 (Version 1)
Quarter: 2015Q2

REPORT INFORMATION
  Report Type: Spontaneous
  Country: US (occurrence: US)
  Receive Date: 20150522
  Receipt Date: 20150522
  Transmission Date: 20150821
  Serious: No
  Sender: FDA-Public Use
  Company Number: US-PFIZER INC-2015172484

PATIENT
  Sex: Female

DRUGS (1)
  1. CHANTIX [Suspect]
     Active Substance: VARENICLINE TARTRATE
     Dosage: UNK
     Dates: end: 201505

REACTIONS (4)
  - Abdominal distension [Unknown]
  - Peripheral swelling [Unknown]
  - Joint swelling [Unknown]
  - Malaise [Unknown]

NARRATIVE: CASE EVENT DATE: 201505
